FAERS Safety Report 6433327-2 (Version None)
Quarter: 2009Q4

REPORT INFORMATION
  Report Type: 
  Country: None (occurrence: None)
  Receive Date: 20091109
  Receipt Date: 20091104
  Transmission Date: 20100525
  Serious: Yes (Death, Other)
  Sender: FDA-Public Use
  Company Number: PHHY2009JP48059

PATIENT
  Age: 31 Year
  Sex: Male

DRUGS (10)
  1. CYCLOSPORINE [Suspect]
     Indication: CORD BLOOD TRANSPLANT THERAPY
  2. CYCLOSPORINE [Suspect]
     Indication: PROPHYLAXIS AGAINST GRAFT VERSUS HOST DISEASE
  3. MYCOPHENOLATE MOFETIL [Concomitant]
     Indication: PROPHYLAXIS AGAINST GRAFT VERSUS HOST DISEASE
  4. GEMTUZUMAB OZOGAMICIN [Concomitant]
     Indication: CORD BLOOD TRANSPLANT THERAPY
     Dosage: UNK
  5. GEMTUZUMAB OZOGAMICIN [Concomitant]
     Dosage: UNK
  6. FLUDARABINE [Concomitant]
     Indication: CORD BLOOD TRANSPLANT THERAPY
     Dosage: UNK
  7. MELPHALAN [Concomitant]
     Indication: CORD BLOOD TRANSPLANT THERAPY
     Dosage: UNK
  8. TOTAL BODY IRRADIATION [Concomitant]
     Indication: CORD BLOOD TRANSPLANT THERAPY
  9. CYTOSINE ARABINOSIDE [Concomitant]
     Indication: CORD BLOOD TRANSPLANT THERAPY
  10. LOW MOLECULAR WEIGHT HEPARIN [Concomitant]
     Indication: PROPHYLAXIS

REACTIONS (10)
  - ABDOMINAL PAIN UPPER [None]
  - ASCITES [None]
  - COAGULOPATHY [None]
  - COMPLICATIONS OF BONE MARROW TRANSPLANT [None]
  - HEPATOMEGALY [None]
  - HYPERBILIRUBINAEMIA [None]
  - LEUKAEMIA RECURRENT [None]
  - RETROGRADE PORTAL VEIN FLOW [None]
  - TRANSAMINASES INCREASED [None]
  - VENOOCCLUSIVE LIVER DISEASE [None]
